FAERS Safety Report 4917372-1 (Version None)
Quarter: 2006Q1

REPORT INFORMATION
  Report Type: 
  Country: None (occurrence: None)
  Receive Date: 20060221
  Receipt Date: 20060213
  Transmission Date: 20060701
  Serious: Yes (Hospitalization)
  Sender: FDA-Public Use
  Company Number: 2006-01-1524

PATIENT
  Age: 48 Year
  Sex: Male

DRUGS (3)
  1. COMPAZINE [Suspect]
     Indication: NAUSEA
  2. PEG-INTRON [Suspect]
     Indication: HEPATITIS C
     Route: 058
     Dates: start: 20060106, end: 20060106
  3. RIBAVIRIN [Suspect]
     Indication: HEPATITIS C
     Route: 048

REACTIONS (30)
  - ANGER [None]
  - ARTHRALGIA [None]
  - BIPOLAR DISORDER [None]
  - BLEPHAROSPASM [None]
  - CATATONIA [None]
  - CHILLS [None]
  - CHOKING [None]
  - CONVULSION [None]
  - CORNEAL REFLEX DECREASED [None]
  - COUGH [None]
  - DIARRHOEA [None]
  - DISEASE PROGRESSION [None]
  - DYSPHONIA [None]
  - HEADACHE [None]
  - HEPATIC CIRRHOSIS [None]
  - HYPOMANIA [None]
  - INJECTION SITE ERYTHEMA [None]
  - INSOMNIA [None]
  - JOINT STIFFNESS [None]
  - LOSS OF CONSCIOUSNESS [None]
  - MUSCLE SPASMS [None]
  - NAUSEA [None]
  - OBESITY [None]
  - PARKINSON'S DISEASE [None]
  - PYREXIA [None]
  - RESTLESSNESS [None]
  - TONGUE BITING [None]
  - TREMOR [None]
  - VOMITING [None]
  - WEIGHT DECREASED [None]
